FAERS Safety Report 25509058 (Version 1)
Quarter: 2025Q3

REPORT INFORMATION
  Report Type: Spontaneous
  Country: KW (occurrence: KW)
  Receive Date: 20250703
  Receipt Date: 20250703
  Transmission Date: 20251021
  Serious: Yes (Hospitalization)
  Sender: CSL BEHRING
  Company Number: KW-BEH-2025211063

PATIENT
  Age: 83 Year
  Sex: Male
  Weight: 60 kg

DRUGS (2)
  1. KORSUVA [Suspect]
     Active Substance: DIFELIKEFALIN ACETATE
     Indication: Chronic kidney disease-associated pruritus
     Dosage: 0.6 ML, QOD
     Route: 042
     Dates: start: 20250217, end: 20250222
  2. LYRICA [Concomitant]
     Active Substance: PREGABALIN
     Indication: Pruritus
     Dosage: UNK, BIW
     Route: 048
     Dates: start: 202403

REACTIONS (2)
  - Fall [Unknown]
  - Limb fracture [Unknown]

NARRATIVE: CASE EVENT DATE: 20250201
